FAERS Safety Report 7850127-7 (Version None)
Quarter: 2011Q4

REPORT INFORMATION
  Report Type: 
  Country: None (occurrence: None)
  Receive Date: 20111026
  Receipt Date: 20111018
  Transmission Date: 20120403
  Serious: Yes (Hospitalization)
  Sender: FDA-Public Use
  Company Number: US-ASTELLAS-2011US005903

PATIENT
  Sex: Female
  Weight: 43 kg

DRUGS (3)
  1. ALIMTA [Suspect]
     Indication: NON-SMALL CELL LUNG CANCER
     Dosage: 735 DF Q3W
     Route: 042
     Dates: start: 20110630
  2. ERLOTINIB HYDROCHLORIDE [Suspect]
     Dosage: 100 MG, CYCLIC
     Route: 048
  3. ERLOTINIB HYDROCHLORIDE [Suspect]
     Indication: NON-SMALL CELL LUNG CANCER
     Dosage: 100 MG, CYCLIC
     Route: 048
     Dates: start: 20110701, end: 20110707

REACTIONS (5)
  - DECREASED APPETITE [None]
  - CELLULITIS [None]
  - INCORRECT DOSE ADMINISTERED [None]
  - INAPPROPRIATE SCHEDULE OF DRUG ADMINISTRATION [None]
  - DYSPHAGIA [None]
